FAERS Safety Report 5129144-6 (Version None)
Quarter: 2006Q4

REPORT INFORMATION
  Report Type: 
  Country: None (occurrence: None)
  Receive Date: 20061011
  Receipt Date: 20060920
  Transmission Date: 20070319
  Serious: Yes (Death, Hospitalization, Other)
  Sender: FDA-Public Use
  Company Number: DE200608001333

PATIENT
  Age: 57 Year
  Sex: Male
  Weight: 90 kg

DRUGS (4)
  1. CIALIS [Suspect]
     Indication: ERECTILE DYSFUNCTION
     Dosage: 20 MG, DAILY (1/D), ORAL
     Route: 048
     Dates: start: 20040105
  2. THYRONAJOD                    (LEVOTHYROXINE SODIUM, POTASSIUM IODIDE) [Concomitant]
  3. ASPIRIN [Concomitant]
  4. ENALAPRIL MALEATE [Concomitant]

REACTIONS (17)
  - ACIDOSIS [None]
  - BODY TEMPERATURE INCREASED [None]
  - CALCULUS URINARY [None]
  - COLON GANGRENE [None]
  - DIVERTICULUM INTESTINAL [None]
  - DUODENITIS [None]
  - HYPERDYNAMIC PRECORDIUM [None]
  - ILEAL GANGRENE [None]
  - IMPAIRED GASTRIC EMPTYING [None]
  - INTESTINAL INFARCTION [None]
  - INTESTINAL ISCHAEMIA [None]
  - JEJUNAL GANGRENE [None]
  - LABORATORY TEST ABNORMAL [None]
  - MESENTERIC OCCLUSION [None]
  - MULTI-ORGAN FAILURE [None]
  - NEPHROLITHIASIS [None]
  - REFLUX OESOPHAGITIS [None]
